FAERS Safety Report 10508946 (Version 1)
Quarter: 2014Q3

REPORT INFORMATION
  Report Type: Spontaneous
  Country: US (occurrence: None)
  Receive Date: 20140915
  Receipt Date: 20140915
  Transmission Date: 20150326
  Serious: Yes (Other)
  Sender: FDA-Public Use
  Company Number: 2014-US-007557

PATIENT
  Age: 22 Year
  Sex: Female

DRUGS (5)
  1. DEPLIN (CALCIUM LEVOMEFOLATE) [Concomitant]
  2. XYREM [Suspect]
     Active Substance: SODIUM OXYBATE
     Indication: NARCOLEPSY
     Route: 048
     Dates: start: 201404, end: 201404
  3. LO LOESTRIN FE [Concomitant]
     Active Substance: ETHINYL ESTRADIOL\NORETHINDRONE ACETATE
  4. PRISTIQ EXTENDED RELEASE [Concomitant]
     Active Substance: DESVENLAFAXINE SUCCINATE
  5. PRILOSEC [Concomitant]
     Active Substance: OMEPRAZOLE MAGNESIUM

REACTIONS (8)
  - Decreased appetite [None]
  - Insomnia [None]
  - Muscle spasms [None]
  - Confusional state [None]
  - Feeling abnormal [None]
  - Drug intolerance [None]
  - Depression [None]
  - Night sweats [None]

NARRATIVE: CASE EVENT DATE: 2014
